FAERS Safety Report 25299389 (Version 2)
Quarter: 2025Q3

REPORT INFORMATION
  Report Type: Spontaneous
  Country: US (occurrence: US)
  Receive Date: 20250512
  Receipt Date: 20250816
  Transmission Date: 20251021
  Serious: No
  Sender: ALEXION PHARMACEUTICALS
  Company Number: US-AstraZeneca-CH-00866763A

PATIENT
  Sex: Female

DRUGS (1)
  1. FARXIGA [Suspect]
     Active Substance: DAPAGLIFLOZIN PROPANEDIOL
     Route: 065

REACTIONS (10)
  - Adverse event [Unknown]
  - Fall [Unknown]
  - Disorientation [Unknown]
  - Dizziness [Unknown]
  - Confusional state [Unknown]
  - Head injury [Unknown]
  - Discontinued product administered [Unknown]
  - Memory impairment [Unknown]
  - Contusion [Unknown]
  - Ligament sprain [Unknown]
